FAERS Safety Report 8820803 (Version 1)
Quarter: 2012Q4

REPORT INFORMATION
  Report Type: 
  Country: ES (occurrence: ES)
  Receive Date: 20121002
  Receipt Date: 20121002
  Transmission Date: 20130627
  Serious: Yes (Other)
  Sender: FDA-Public Use
  Company Number: ES-WATSON-2012-16650

PATIENT
  Age: 50 Year
  Sex: Female

DRUGS (6)
  1. NORFLOXACIN [Suspect]
     Indication: URINARY TRACT INFECTION
     Dosage: UNK
     Route: 065
  2. NORFLOXACIN [Suspect]
     Indication: SKIN TEST
  3. LEVOFLOXACIN SODIUM [Suspect]
     Indication: ALLERGY TEST
     Dosage: 500 mg, single
     Route: 048
  4. CIPROFLOXACIN HYDROCHLORIDE (UNKNOWN) [Suspect]
     Indication: SKIN TEST
     Dosage: UNK
     Route: 062
  5. AMOXICILLIN SODIUM [Suspect]
     Indication: PRODUCT USED FOR UNKNOWN INDICATION
     Dosage: UNK
     Route: 065
  6. MOXIFLOXACIN [Suspect]
     Indication: SKIN TEST
     Dosage: UNK
     Route: 062

REACTIONS (3)
  - Rash erythematous [Recovered/Resolved]
  - Skin test positive [Recovered/Resolved]
  - Anaphylactic reaction [Unknown]
